FAERS Safety Report 7299075-4 (Version None)
Quarter: 2011Q1

REPORT INFORMATION
  Report Type: 
  Country: None (occurrence: None)
  Receive Date: 20110217
  Receipt Date: 20110217
  Transmission Date: 20110831
  Serious: Yes (Disabling)
  Sender: FDA-Public Use
  Company Number: None

PATIENT
  Age: 13 Year
  Sex: Female
  Weight: 45.3597 kg

DRUGS (1)
  1. TRIAD ALCHOL SWAB -KROGERS- [Suspect]
     Dates: start: 20100913, end: 20101201

REACTIONS (1)
  - SKIN INFECTION [None]
